FAERS Safety Report 9210584 (Version 2)
Quarter: 2013Q2

REPORT INFORMATION
  Report Type: Report from Study
  Country: NO (occurrence: NO)
  Receive Date: 20130404
  Receipt Date: 20130621
  Transmission Date: 20140414
  Serious: Yes (Hospitalization, Other)
  Sender: FDA-Public Use
  Company Number: NO-ABBOTT-13P-122-1069047-00

PATIENT
  Age: 30 Year
  Sex: Female

DRUGS (5)
  1. HUMIRA [Suspect]
     Indication: CROHN^S DISEASE
     Dosage: 80MG (BASELINE)
     Route: 058
     Dates: start: 20080801, end: 20080801
  2. HUMIRA [Suspect]
     Dosage: 40MG (WEEK 2)
     Route: 058
  3. HUMIRA [Suspect]
     Route: 058
  4. HUMIRA [Suspect]
     Route: 058
     Dates: start: 20091208
  5. AZATHIOPRINE [Concomitant]
     Indication: CROHN^S DISEASE

REACTIONS (2)
  - Uterine rupture [Recovered/Resolved]
  - Pulmonary embolism [Recovered/Resolved]
